FAERS Safety Report 8407696-8 (Version None)
Quarter: 2012Q2

REPORT INFORMATION
  Report Type: 
  Country: None (occurrence: None)
  Receive Date: 20120323
  Receipt Date: 20110512
  Transmission Date: 20120825
  Serious: Yes (Other)
  Sender: FDA-Public Use
  Company Number: 163-21880-11042561

PATIENT
  Age: 68 Year
  Sex: Male
  Weight: 86.18 kg

DRUGS (2)
  1. ASPIRIN [Concomitant]
  2. REVLIMID [Suspect]
     Indication: MULTIPLE MYELOMA
     Dosage: 25 MG, DAILY ON DAYS 1-21 DAYS Q 28 D, PO
     Route: 048
     Dates: start: 20110226

REACTIONS (3)
  - PULMONARY ARTERY THROMBOSIS [None]
  - DEEP VEIN THROMBOSIS [None]
  - RASH [None]
